FAERS Safety Report 4894498-2 (Version None)
Quarter: 2006Q1

REPORT INFORMATION
  Report Type: 
  Country: None (occurrence: None)
  Receive Date: 20060124
  Receipt Date: 20060116
  Transmission Date: 20060701
  Serious: Yes (Hospitalization)
  Sender: FDA-Public Use
  Company Number: 2006BI000764

PATIENT
  Age: 70 Year
  Sex: Male
  Weight: 77.1115 kg

DRUGS (6)
  1. AVONEX [Suspect]
     Indication: MULTIPLE SCLEROSIS
     Dosage: 30 UG; QW; IM
     Route: 030
  2. AVONEX [Suspect]
     Indication: MULTIPLE SCLEROSIS
     Dosage: 30 UG; QW; IM
     Route: 030
  3. INSULIN [Concomitant]
  4. URECHOLINE [Concomitant]
  5. FLOMAX [Concomitant]
  6. EFFEXOR [Concomitant]

REACTIONS (10)
  - BLOOD DISORDER [None]
  - CARDIAC DISORDER [None]
  - CATHETER RELATED COMPLICATION [None]
  - DEVICE RELATED INFECTION [None]
  - HIP FRACTURE [None]
  - LEG AMPUTATION [None]
  - LOWER LIMB FRACTURE [None]
  - PAIN [None]
  - ROAD TRAFFIC ACCIDENT [None]
  - STAPHYLOCOCCAL INFECTION [None]
